FAERS Safety Report 4550358-8 (Version None)
Quarter: 2005Q1

REPORT INFORMATION
  Report Type: 
  Country: None (occurrence: None)
  Receive Date: 20050111
  Receipt Date: 20050111
  Transmission Date: 20050727
  Serious: Yes (Other)
  Sender: FDA-Public Use
  Company Number: None

PATIENT
  Sex: Female

DRUGS (3)
  1. ESTROSTEP [Suspect]
     Indication: CONTRACEPTION
     Dates: start: 19990301, end: 20010401
  2. NECON 1/85 + 1/50 [Suspect]
     Dates: start: 20010401, end: 20010501
  3. DEMULEN 1/35-21 [Suspect]
     Dates: start: 20010501, end: 20010701

REACTIONS (1)
  - METRORRHAGIA [None]
